FAERS Safety Report 5657864-3 (Version None)
Quarter: 2008Q1

REPORT INFORMATION
  Report Type: 
  Country: None (occurrence: None)
  Receive Date: 20080310
  Receipt Date: 20080227
  Transmission Date: 20080703
  Serious: Yes (Hospitalization)
  Sender: FDA-Public Use
  Company Number: NL-MERCK-0802NLD00017

PATIENT
  Age: 48 Year
  Sex: Female
  Weight: 100 kg

DRUGS (6)
  1. JANUVIA [Suspect]
     Indication: TYPE 2 DIABETES MELLITUS
     Route: 048
     Dates: end: 20070101
  2. VALSARTAN [Suspect]
     Route: 048
     Dates: end: 20070101
  3. PRAVASTATIN SODIUM [Concomitant]
     Route: 048
  4. METFORMIN [Concomitant]
     Route: 048
  5. METOPROLOL TARTRATE [Concomitant]
     Route: 048
  6. HYDROCHLOROTHIAZIDE [Concomitant]
     Route: 048

REACTIONS (5)
  - PALMAR ERYTHEMA [None]
  - PRURITUS [None]
  - RASH [None]
  - SWELLING [None]
  - SWOLLEN TONGUE [None]
